FAERS Safety Report 7183769-5 (Version None)
Quarter: 2010Q4

REPORT INFORMATION
  Report Type: 
  Country: None (occurrence: None)
  Receive Date: 20101222
  Receipt Date: 20101215
  Transmission Date: 20110411
  Serious: Yes (Hospitalization, Other)
  Sender: FDA-Public Use
  Company Number: BR-SANOFI-AVENTIS-2010SA076288

PATIENT
  Sex: Female
  Weight: 45 kg

DRUGS (6)
  1. LANTUS [Suspect]
     Indication: TYPE 2 DIABETES MELLITUS
     Route: 058
  2. SOLOSTAR [Suspect]
  3. CORTICOSTEROIDS [Suspect]
     Indication: PNEUMONIA
  4. BUDESONIDE/FORMOTEROL FUMARATE [Concomitant]
     Indication: LUNG DISORDER
     Route: 048
  5. SPIRIVA [Concomitant]
     Indication: LUNG DISORDER
     Dosage: 2 SPRAYS
  6. SEKI [Concomitant]
     Indication: LUNG DISORDER
     Route: 048

REACTIONS (9)
  - CARDIAC ARREST [None]
  - CHRONIC OBSTRUCTIVE PULMONARY DISEASE [None]
  - DYSPNOEA [None]
  - HALLUCINATION [None]
  - HYPERGLYCAEMIA [None]
  - PNEUMONIA [None]
  - PRESYNCOPE [None]
  - SOMNOLENCE [None]
  - VISION BLURRED [None]
